FAERS Safety Report 4262373-2 (Version None)
Quarter: 2004Q1

REPORT INFORMATION
  Report Type: 
  Country: None (occurrence: None)
  Receive Date: 20040102
  Receipt Date: 20031222
  Transmission Date: 20041129
  Serious: Yes (Other)
  Sender: FDA-Public Use
  Company Number: PHHO2003FI16549

PATIENT
  Age: 56 Year
  Sex: Female

DRUGS (1)
  1. LESCOL [Suspect]

REACTIONS (3)
  - CHEST PAIN [None]
  - DYSPEPSIA [None]
  - INSOMNIA [None]
